FAERS Safety Report 6050588-2 (Version None)
Quarter: 2009Q1

REPORT INFORMATION
  Report Type: 
  Country: None (occurrence: None)
  Receive Date: 20090126
  Receipt Date: 20090114
  Transmission Date: 20090719
  Serious: Yes (Hospitalization)
  Sender: FDA-Public Use
  Company Number: DE-PFIZER INC-2009155159

PATIENT

DRUGS (5)
  1. SUNITINIB MALATE [Suspect]
     Indication: METASTATIC GASTRIC CANCER
     Dosage: 37.5 MG, 1X/DAY
     Route: 048
     Dates: start: 20080520, end: 20081216
  2. CREON [Concomitant]
     Indication: PANCREATIC INSUFFICIENCY
     Dosage: UNK
  3. ALNA [Concomitant]
     Indication: BENIGN PROSTATIC HYPERPLASIA
     Dosage: 0.4 MG, UNK
  4. METOCLOPRAMIDE [Concomitant]
     Indication: TUMOUR PAIN
     Dosage: UNK
  5. NUTRITIONAL SUPPLEMENT [Concomitant]
     Indication: WEIGHT DECREASED

REACTIONS (2)
  - COORDINATION ABNORMAL [None]
  - MUSCULAR WEAKNESS [None]
